FAERS Safety Report 8308445-4 (Version None)
Quarter: 2012Q1

REPORT INFORMATION
  Report Type: 
  Country: None (occurrence: None)
  Receive Date: 20120327
  Receipt Date: 20091106
  Transmission Date: 20120608
  Serious: Yes (Other)
  Sender: FDA-Public Use
  Company Number: PHEH2009US15497

PATIENT
  Age: 72 Year
  Sex: Female

DRUGS (1)
  1. GLEEVEC [Suspect]
     Indication: CHRONIC MYELOID LEUKAEMIA
     Dosage: 400 MG, QD, ORAL, 200 MG, QOD, ORAL
     Route: 048

REACTIONS (4)
  - FATIGUE [None]
  - SOMNOLENCE [None]
  - CHRONIC MYELOID LEUKAEMIA [None]
  - CARDIAC FAILURE CONGESTIVE [None]
